FAERS Safety Report 19011992 (Version 1)
Quarter: 2021Q1

REPORT INFORMATION
  Report Type: Spontaneous
  Country: US (occurrence: US)
  Receive Date: 20210315
  Receipt Date: 20210315
  Transmission Date: 20210420
  Serious: No
  Sender: FDA-Public Use
  Company Number: US-ASTRAZENECA-2021A106880

PATIENT
  Age: 86 Year
  Sex: Female

DRUGS (1)
  1. BREZTRI AEROSPHERE [Suspect]
     Active Substance: BUDESONIDE\FORMOTEROL\GLYCOPYRRONIUM
     Indication: CHRONIC OBSTRUCTIVE PULMONARY DISEASE
     Dosage: 160/9/4.8MCG 2 PUFFS TWICE A DAY
     Route: 055

REACTIONS (5)
  - Fungal infection [Unknown]
  - Ocular hyperaemia [Unknown]
  - Swelling [Unknown]
  - Stomatitis [Unknown]
  - Throat irritation [Unknown]

NARRATIVE: CASE EVENT DATE: 20210202
